FAERS Safety Report 9593928 (Version 1)
Quarter: 2013Q3

REPORT INFORMATION
  Report Type: Spontaneous
  Country: US (occurrence: None)
  Receive Date: 20130930
  Receipt Date: 20130930
  Transmission Date: 20140515
  Serious: No
  Sender: FDA-Public Use
  Company Number: 1000047845

PATIENT
  Age: 70 Year
  Sex: Female

DRUGS (3)
  1. LINZESS (LINACLOTIDE) (290 MICROGRAM, CAPSULES) [Suspect]
     Indication: CONSTIPATION
     Dosage: 290 MCG, 1 IN 1 D
     Route: 048
     Dates: start: 20130812
  2. LEXAPRO [Concomitant]
  3. XANAX [Concomitant]

REACTIONS (2)
  - Abdominal pain [None]
  - Gastrointestinal motility disorder [None]
